FAERS Safety Report 11137210 (Version 4)
Quarter: 2015Q4

REPORT INFORMATION
  Report Type: Spontaneous
  Country: US (occurrence: US)
  Receive Date: 20150526
  Receipt Date: 20151013
  Transmission Date: 20160304
  Serious: Yes (Other)
  Sender: FDA-Public Use
  Company Number: US-009507513-1505USA013456

PATIENT
  Sex: Female

DRUGS (1)
  1. IMPLANON [Suspect]
     Active Substance: ETONOGESTREL
     Indication: CONTRACEPTION
     Dosage: 1 DF,  EVERY THREE YEARS
     Route: 059
     Dates: start: 20130531, end: 20150819

REACTIONS (10)
  - Menorrhagia [Not Recovered/Not Resolved]
  - Metrorrhagia [Unknown]
  - Polymenorrhoea [Unknown]
  - Medical device complication [Recovered/Resolved]
  - Vaginal discharge [Unknown]
  - Urinary tract infection [Unknown]
  - Gastric banding [Unknown]
  - Pruritus [Not Recovered/Not Resolved]
  - Dizziness [Unknown]
  - Menstruation irregular [Unknown]

NARRATIVE: CASE EVENT DATE: 2013
